FAERS Safety Report 8409479 (Version 11)
Quarter: 2015Q3

REPORT INFORMATION
  Report Type: Spontaneous
  Country: US (occurrence: US)
  Receive Date: 20120216
  Receipt Date: 20150707
  Transmission Date: 20151125
  Serious: Yes (Hospitalization, Other)
  Sender: FDA-Public Use
  Company Number: US-MERCK-1202USA02277

PATIENT
  Sex: Female

DRUGS (4)
  1. FOSAMAX PLUS D [Suspect]
     Active Substance: ALENDRONATE SODIUM\CHOLECALCIFEROL
     Dosage: 70MG/2800 UNK
     Route: 048
     Dates: start: 20060313, end: 20060612
  2. FOSAMAX [Suspect]
     Active Substance: ALENDRONATE SODIUM
     Indication: OSTEOPOROSIS
     Dosage: 70 MG, UNK
     Route: 048
     Dates: start: 20020614, end: 20140724
  3. FOSAMAX PLUS D [Suspect]
     Active Substance: ALENDRONATE SODIUM\CHOLECALCIFEROL
     Indication: OSTEOPOROSIS
     Dosage: 70MG/5600, UNK
     Route: 048
     Dates: start: 20060313, end: 20100304
  4. ALENDRONATE SODIUM. [Suspect]
     Active Substance: ALENDRONATE SODIUM
     Indication: OSTEOPOROSIS
     Dosage: 70 MG, UNK
     Dates: start: 20100622, end: 20100823

REACTIONS (18)
  - Femur fracture [Unknown]
  - Cataract [Unknown]
  - Osteoarthritis [Unknown]
  - Osteoporosis [Unknown]
  - Coronary artery disease [Unknown]
  - Intramedullary rod insertion [Unknown]
  - Biopsy bone [Unknown]
  - Endodontic procedure [Unknown]
  - Biopsy bone [Unknown]
  - Arthralgia [Unknown]
  - Osteopenia [Unknown]
  - Femur fracture [Unknown]
  - Osteoarthritis [Unknown]
  - Intramedullary rod insertion [Unknown]
  - Fall [Unknown]
  - Contusion [Unknown]
  - Spinal osteoarthritis [Unknown]
  - Hypothyroidism [Unknown]

NARRATIVE: CASE EVENT DATE: 20040809
